FAERS Safety Report 16198129 (Version 3)
Quarter: 2019Q3

REPORT INFORMATION
  Report Type: Report from Study
  Country: US (occurrence: US)
  Receive Date: 20190415
  Receipt Date: 20190701
  Transmission Date: 20191004
  Serious: Yes (Death, Hospitalization)
  Sender: FDA-Public Use
  Company Number: US-EXELIXIS-CABO-19019811

PATIENT
  Sex: Male

DRUGS (1)
  1. CABOMETYX [Suspect]
     Active Substance: CABOZANTINIB S-MALATE
     Indication: MALIGNANT MELANOMA
     Dosage: 40 MG, QD (IN THE AFTERNOON WITHOUT FOOD ON EMPTY STOMACH)
     Dates: start: 20190313, end: 20190406

REACTIONS (6)
  - Death [Fatal]
  - Off label use [Unknown]
  - Pneumonia influenzal [Recovered/Resolved]
  - Oral pain [Unknown]
  - Weight decreased [Unknown]
  - Appetite disorder [Unknown]

NARRATIVE: CASE EVENT DATE: 2019
